FAERS Safety Report 21803236 (Version 1)
Quarter: 2023Q1

REPORT INFORMATION
  Report Type: Spontaneous
  Country: US (occurrence: US)
  Receive Date: 20230101
  Receipt Date: 20230101
  Transmission Date: 20230417
  Serious: Yes (Other)
  Sender: FDA-Public Use
  Company Number: US-JNJFOC-20221251072

PATIENT
  Sex: Female

DRUGS (1)
  1. NEUTROGENA AGE SHIELD FACE OIL FREE SUNSCRN BR?D SPECT SPF 70 (AV\HOM\ [Suspect]
     Active Substance: AVOBENZONE\HOMOSALATE\OCTISALATE\OCTOCRYLENE
     Indication: Skin cancer
     Route: 061

REACTIONS (2)
  - Skin cancer [Unknown]
  - Product use in unapproved indication [Unknown]
